FAERS Safety Report 8134336-8 (Version None)
Quarter: 2012Q1

REPORT INFORMATION
  Report Type: 
  Country: None (occurrence: None)
  Receive Date: 20120209
  Receipt Date: 20120202
  Transmission Date: 20120608
  Serious: Yes (Other)
  Sender: FDA-Public Use
  Company Number: GER/UKI/12/0022688

PATIENT
  Age: 73 Year

DRUGS (6)
  1. RISPERIDONE [Suspect]
     Indication: BIPOLAR DISORDER
     Dosage: 2 MG,1 IN 1 D, ORAL
     Route: 048
     Dates: end: 20110722
  2. RISPERIDONE [Suspect]
     Indication: ANXIETY
     Dosage: 2 MG,1 IN 1 D, ORAL
     Route: 048
     Dates: end: 20110722
  3. FLUOXETINE [Concomitant]
  4. SEROQUEL XR [Suspect]
     Indication: BIPOLAR DISORDER
     Dosage: 50 MG, 1 IN 1 D, ORAL
     Route: 048
     Dates: start: 20110722, end: 20111115
  5. RAMIPRIL [Concomitant]
  6. PREGABALIN [Concomitant]

REACTIONS (3)
  - DRUG WITHDRAWAL SYNDROME [None]
  - TARDIVE DYSKINESIA [None]
  - TONGUE PARALYSIS [None]
